FAERS Safety Report 18980133 (Version 2)
Quarter: 2021Q1

REPORT INFORMATION
  Report Type: Spontaneous
  Country: DE (occurrence: DE)
  Receive Date: 20210308
  Receipt Date: 20210322
  Transmission Date: 20210420
  Serious: Yes (Death, Other)
  Sender: FDA-Public Use
  Company Number: DE-B.I. PHARMACEUTICALS,INC./RIDGEFIELD-2021-BI-088105

PATIENT
  Age: 50 Year

DRUGS (8)
  1. DACOMITINIB [Concomitant]
     Active Substance: DACOMITINIB
     Indication: LUNG ADENOCARCINOMA
     Dates: start: 202005, end: 202006
  2. GILOTRIF [Suspect]
     Active Substance: AFATINIB
     Indication: LUNG ADENOCARCINOMA
     Dates: start: 201703, end: 201711
  3. OSIMERTINIB. [Concomitant]
     Active Substance: OSIMERTINIB
     Dates: start: 202001, end: 202005
  4. GILOTRIF [Suspect]
     Active Substance: AFATINIB
     Dates: start: 201811, end: 201904
  5. VARGATEF [Suspect]
     Active Substance: NINTEDANIB
     Indication: LUNG ADENOCARCINOMA
     Dates: start: 201911, end: 202006
  6. DOCETAXEL. [Suspect]
     Active Substance: DOCETAXEL
     Indication: LUNG ADENOCARCINOMA
     Dates: start: 201911, end: 202006
  7. OSIMERTINIB. [Concomitant]
     Active Substance: OSIMERTINIB
     Indication: LUNG ADENOCARCINOMA
     Dates: start: 201711, end: 201803
  8. OSIMERTINIB. [Concomitant]
     Active Substance: OSIMERTINIB
     Dates: start: 201807, end: 201811

REACTIONS (7)
  - Disease progression [Unknown]
  - Toxicity to various agents [Unknown]
  - Death [Fatal]
  - Nervous system disorder [Unknown]
  - Disease progression [Unknown]
  - Disease progression [Unknown]
  - Disease progression [Unknown]

NARRATIVE: CASE EVENT DATE: 201711
